FAERS Safety Report 8053080-9 (Version None)
Quarter: 2012Q1

REPORT INFORMATION
  Report Type: 
  Country: None (occurrence: None)
  Receive Date: 20120118
  Receipt Date: 20120116
  Transmission Date: 20120608
  Serious: Yes (Death)
  Sender: FDA-Public Use
  Company Number: US-MEDIMMUNE-MEDI-0014465

PATIENT
  Sex: Male

DRUGS (2)
  1. LASIX [Concomitant]
  2. SYNAGIS [Suspect]
     Route: 030
     Dates: start: 20111031, end: 20111031

REACTIONS (1)
  - DEATH [None]
